FAERS Safety Report 4541912-8 (Version None)
Quarter: 2004Q4

REPORT INFORMATION
  Report Type: 
  Country: None (occurrence: None)
  Receive Date: 20041230
  Receipt Date: 20041129
  Transmission Date: 20050328
  Serious: Yes (Disabling, Other)
  Sender: FDA-Public Use
  Company Number: PHFR2004GB04429

PATIENT
  Age: 25 Year
  Sex: Male

DRUGS (2)
  1. CLOZARIL [Suspect]
     Indication: SCHIZOPHRENIA
     Dosage: 300MG/DAY
     Route: 048
     Dates: start: 20030408
  2. CIPRAMIL [Concomitant]

REACTIONS (3)
  - CHOREA [None]
  - MOVEMENT DISORDER [None]
  - OBSESSIVE-COMPULSIVE DISORDER [None]
